FAERS Safety Report 16458633 (Version 1)
Quarter: 2019Q2

REPORT INFORMATION
  Report Type: Spontaneous
  Country: US (occurrence: US)
  Receive Date: 20190620
  Receipt Date: 20190620
  Transmission Date: 20190711
  Serious: No
  Sender: FDA-Public Use
  Company Number: US-THERAPEUTICSMD-2019TMD00564

PATIENT
  Sex: Female
  Weight: 53.06 kg

DRUGS (2)
  1. UNSPECIFIED CONCOMITANT PRODUCTS [Concomitant]
  2. IMVEXXY [Suspect]
     Active Substance: ESTRADIOL
     Indication: VULVOVAGINAL DRYNESS
     Dosage: 4 ?G, 2X/WEEK
     Route: 067
     Dates: start: 2019

REACTIONS (4)
  - Vaginal discharge [Not Recovered/Not Resolved]
  - Therapeutic product ineffective for unapproved indication [Not Recovered/Not Resolved]
  - Contraindicated product prescribed [Not Recovered/Not Resolved]
  - Off label use [Not Recovered/Not Resolved]

NARRATIVE: CASE EVENT DATE: 2019
